FAERS Safety Report 4694024-7 (Version None)
Quarter: 2005Q2

REPORT INFORMATION
  Report Type: 
  Country: None (occurrence: None)
  Receive Date: 20050616
  Receipt Date: 20050602
  Transmission Date: 20051028
  Serious: Yes (Death)
  Sender: FDA-Public Use
  Company Number: 05USA0129

PATIENT
  Age: 72 Year
  Sex: Female

DRUGS (2)
  1. AGGRASTAT [Suspect]
     Indication: ANGINA UNSTABLE
     Dosage: 0.25 MG/ML
     Dates: start: 20050401, end: 20050401
  2. METALYSE (TENECTEPLASE) (INJECTION) [Suspect]
     Indication: ANGINA UNSTABLE
     Dosage: NR
     Dates: start: 20050401, end: 20050401

REACTIONS (2)
  - CARDIOGENIC SHOCK [None]
  - DRUG INEFFECTIVE [None]
